FAERS Safety Report 9450425 (Version 1)
Quarter: 2013Q3

REPORT INFORMATION
  Report Type: Spontaneous
  Country: FR (occurrence: None)
  Receive Date: 20130807
  Receipt Date: 20130807
  Transmission Date: 20140515
  Serious: Yes (Hospitalization)
  Sender: FDA-Public Use
  Company Number: ZYD-13-AE-205

PATIENT
  Age: 62 Year
  Sex: Female

DRUGS (3)
  1. RIBAVIRIN [Suspect]
     Indication: CHRONIC HEPATITIS C
  2. PEGINTERFERON-ALPHA-2A [Concomitant]
  3. AMANTADINE [Concomitant]

REACTIONS (9)
  - Sarcoidosis [None]
  - Confusional state [None]
  - Hallucination, visual [None]
  - Drug tolerance decreased [None]
  - Lung disorder [None]
  - Infection [None]
  - Polyneuropathy [None]
  - Demyelination [None]
  - Drug effect incomplete [None]
